FAERS Safety Report 14034315 (Version 1)
Quarter: 2017Q4

REPORT INFORMATION
  Report Type: Spontaneous
  Country: CN (occurrence: CN)
  Receive Date: 20171003
  Receipt Date: 20171003
  Transmission Date: 20180321
  Serious: Yes (Hospitalization)
  Sender: FDA-Public Use
  Company Number: CN-009507513-1710CHN000158

PATIENT
  Age: 51 Year
  Sex: Female
  Weight: 45 kg

DRUGS (2)
  1. TIENAM [Suspect]
     Active Substance: CILASTATIN SODIUM\IMIPENEM
     Indication: SEPSIS
     Dosage: 0.5 G, QID
     Route: 041
     Dates: start: 20170803, end: 20170803
  2. ETIMICIN SULFATE [Concomitant]
     Active Substance: ETIMICIN SULFATE
     Dosage: 0.15 G, BID
     Route: 041
     Dates: start: 20170803, end: 20170803

REACTIONS (1)
  - Tic [Not Recovered/Not Resolved]

NARRATIVE: CASE EVENT DATE: 20170804
